FAERS Safety Report 8837411 (Version 3)
Quarter: 2012Q4

REPORT INFORMATION
  Report Type: 
  Country: FR (occurrence: FR)
  Receive Date: 20121012
  Receipt Date: 20121024
  Transmission Date: 20130627
  Serious: No
  Sender: FDA-Public Use
  Company Number: FR-JNJFOC-20120912560

PATIENT
  Sex: Female
  Weight: 58 kg

DRUGS (1)
  1. DUROGESIC [Suspect]
     Indication: PAIN
     Route: 062
     Dates: start: 20120829

REACTIONS (3)
  - Pain [Unknown]
  - Product quality issue [Unknown]
  - Wrong technique in drug usage process [Unknown]
